FAERS Safety Report 16876818 (Version 4)
Quarter: 2020Q4

REPORT INFORMATION
  Report Type: Spontaneous
  Country: US (occurrence: US)
  Receive Date: 20191002
  Receipt Date: 20201007
  Transmission Date: 20210113
  Serious: Yes (Hospitalization, Other)
  Sender: FDA-Public Use
  Company Number: US-ASTRAZENECA-2019SF36617

PATIENT
  Age: 26896 Day
  Sex: Male
  Weight: 130.6 kg

DRUGS (69)
  1. POTASSIUM CHLORIDE. [Concomitant]
     Active Substance: POTASSIUM CHLORIDE
  2. CALCIUM CARBONATE. [Concomitant]
     Active Substance: CALCIUM CARBONATE
  3. TAZOBACTAM SODIUM [Concomitant]
     Active Substance: TAZOBACTAM SODIUM
  4. KEFLEX [Concomitant]
     Active Substance: CEPHALEXIN
  5. CIPRO [Concomitant]
     Active Substance: CIPROFLOXACIN HYDROCHLORIDE
  6. AMOXICILLIN. [Concomitant]
     Active Substance: AMOXICILLIN
  7. LOPRESSOR [Concomitant]
     Active Substance: METOPROLOL TARTRATE
  8. PROTHROMBIN [Concomitant]
     Active Substance: PROTHROMBIN
  9. KENALOG [Concomitant]
     Active Substance: TRIAMCINOLONE ACETONIDE
  10. MIDAZOLAM. [Concomitant]
     Active Substance: MIDAZOLAM
  11. METOPROLOL. [Concomitant]
     Active Substance: METOPROLOL
  12. WARFARIN [Concomitant]
     Active Substance: WARFARIN
  13. IPRATROPIUM [Concomitant]
     Active Substance: IPRATROPIUM
  14. FARXIGA [Suspect]
     Active Substance: DAPAGLIFLOZIN PROPANEDIOL
     Indication: WEIGHT DECREASED
     Route: 048
     Dates: start: 20160211
  15. DEXTROSE. [Concomitant]
     Active Substance: DEXTROSE
  16. TRAZODONE [Concomitant]
     Active Substance: TRAZODONE HYDROCHLORIDE
  17. TRULICITY [Concomitant]
     Active Substance: DULAGLUTIDE
  18. FLUZONE [Concomitant]
     Active Substance: INFLUENZA A VIRUS A/CALIFORNIA/7/2009 X-179A (H1N1) ANTIGEN (FORMALDEHYDE INACTIVATED)\INFLUENZA A VIRUS A/VICTORIA/210/2009 X-187 (H3N2) ANTIGEN (FORMALDEHYDE INACTIVATED)\INFLUENZA B VIRUS B/BRISBANE/60/2008 ANTIGEN (FORMALDEHYDE INACTIVATED)
  19. ROCURONIUM [Concomitant]
     Active Substance: ROCURONIUM BROMIDE
  20. FARXIGA [Suspect]
     Active Substance: DAPAGLIFLOZIN PROPANEDIOL
     Indication: TYPE 2 DIABETES MELLITUS
     Route: 048
     Dates: start: 20160107
  21. ATORVASTATIN [Concomitant]
     Active Substance: ATORVASTATIN
  22. FUROSEMIDE. [Concomitant]
     Active Substance: FUROSEMIDE
  23. PIPERACILLIN. [Concomitant]
     Active Substance: PIPERACILLIN SODIUM
  24. LISINOPRIL. [Concomitant]
     Active Substance: LISINOPRIL
  25. GABAPENTIN. [Concomitant]
     Active Substance: GABAPENTIN
  26. CLINDAMYCIN. [Concomitant]
     Active Substance: CLINDAMYCIN
  27. METOPROLOL SUCCINATE. [Concomitant]
     Active Substance: METOPROLOL SUCCINATE
     Dates: start: 20180307
  28. FARXIGA [Suspect]
     Active Substance: DAPAGLIFLOZIN PROPANEDIOL
     Indication: BLOOD PRESSURE DECREASED
     Route: 048
     Dates: start: 20160107
  29. FARXIGA [Suspect]
     Active Substance: DAPAGLIFLOZIN PROPANEDIOL
     Indication: TYPE 2 DIABETES MELLITUS
     Route: 048
     Dates: start: 20180116
  30. FARXIGA [Suspect]
     Active Substance: DAPAGLIFLOZIN PROPANEDIOL
     Indication: BLOOD PRESSURE DECREASED
     Route: 048
     Dates: start: 20180307
  31. HYDROCHLOROTHIAZIDE-LOSARTAN [Concomitant]
     Active Substance: HYDROCHLOROTHIAZIDE\LOSARTAN POTASSIUM
  32. PREDNISONE. [Concomitant]
     Active Substance: PREDNISONE
  33. BASAGLAR [Concomitant]
     Active Substance: INSULIN GLARGINE
  34. BYDUREON [Concomitant]
     Active Substance: EXENATIDE
  35. BENICAR [Concomitant]
     Active Substance: OLMESARTAN MEDOXOMIL
  36. OMEPRAZOLE. [Concomitant]
     Active Substance: OMEPRAZOLE
     Dates: start: 20180307
  37. AMARYL [Concomitant]
     Active Substance: GLIMEPIRIDE
     Dates: start: 20180307
  38. METFORMIN [Concomitant]
     Active Substance: METFORMIN HYDROCHLORIDE
  39. INSULIN GLARGINE [Concomitant]
     Active Substance: INSULIN GLARGINE
  40. ALBUTEROL. [Concomitant]
     Active Substance: ALBUTEROL
  41. INVOKANA [Concomitant]
     Active Substance: CANAGLIFLOZIN
  42. COUMADIN [Concomitant]
     Active Substance: WARFARIN SODIUM
  43. MULTIVITAMINS [Concomitant]
     Active Substance: VITAMINS
  44. MAGNESIUM OXIDE. [Concomitant]
     Active Substance: MAGNESIUM OXIDE
  45. FENTANYL. [Concomitant]
     Active Substance: FENTANYL
  46. PERCOCET [Concomitant]
     Active Substance: ACETAMINOPHEN\OXYCODONE HYDROCHLORIDE
     Dates: start: 20180307
  47. FARXIGA [Suspect]
     Active Substance: DAPAGLIFLOZIN PROPANEDIOL
     Indication: TYPE 2 DIABETES MELLITUS
     Route: 048
     Dates: start: 20160211
  48. FARXIGA [Suspect]
     Active Substance: DAPAGLIFLOZIN PROPANEDIOL
     Indication: WEIGHT DECREASED
     Route: 048
     Dates: start: 20180307
  49. ZITHROMAX [Concomitant]
     Active Substance: AZITHROMYCIN DIHYDRATE
  50. PREVNAR [Concomitant]
     Active Substance: PNEUMOCOCCAL 7-VALENT CONJUGATE VACCINE (DIPHTHERIA CRM197 PROTEIN)
  51. LIDOCAINE. [Concomitant]
     Active Substance: LIDOCAINE
  52. MORPHINE [Concomitant]
     Active Substance: MORPHINE
  53. NYSTATIN. [Concomitant]
     Active Substance: NYSTATIN
     Dates: start: 20180307
  54. ASPIRIN. [Concomitant]
     Active Substance: ASPIRIN
     Dates: start: 20180307
  55. FARXIGA [Suspect]
     Active Substance: DAPAGLIFLOZIN PROPANEDIOL
     Indication: WEIGHT DECREASED
     Route: 048
     Dates: start: 20180116
  56. BACTRIM [Concomitant]
     Active Substance: SULFAMETHOXAZOLE\TRIMETHOPRIM
  57. NORCO [Concomitant]
     Active Substance: ACETAMINOPHEN\HYDROCODONE BITARTRATE
  58. VITAMIN B12 [Concomitant]
     Active Substance: CYANOCOBALAMIN
  59. DICLOFENAC [Concomitant]
     Active Substance: DICLOFENAC
     Dates: start: 20080718
  60. FARXIGA [Suspect]
     Active Substance: DAPAGLIFLOZIN PROPANEDIOL
     Indication: WEIGHT DECREASED
     Route: 048
     Dates: start: 20160107
  61. FARXIGA [Suspect]
     Active Substance: DAPAGLIFLOZIN PROPANEDIOL
     Indication: BLOOD PRESSURE DECREASED
     Route: 048
     Dates: start: 20160211
  62. FARXIGA [Suspect]
     Active Substance: DAPAGLIFLOZIN PROPANEDIOL
     Indication: BLOOD PRESSURE DECREASED
     Route: 048
     Dates: start: 20180116
  63. FARXIGA [Suspect]
     Active Substance: DAPAGLIFLOZIN PROPANEDIOL
     Indication: TYPE 2 DIABETES MELLITUS
     Route: 048
     Dates: start: 20180307
  64. MAGNESIUM [Concomitant]
     Active Substance: MAGNESIUM
  65. JANUVIA [Concomitant]
     Active Substance: SITAGLIPTIN PHOSPHATE
  66. SODIUM CHLORIDE. [Concomitant]
     Active Substance: SODIUM CHLORIDE
  67. VANCOMYCIN [Concomitant]
     Active Substance: VANCOMYCIN
  68. CALCIUM CITRATE [Concomitant]
     Active Substance: CALCIUM CITRATE
     Dates: start: 20180307
  69. LOSARTAN. [Concomitant]
     Active Substance: LOSARTAN
     Dates: start: 20180307

REACTIONS (13)
  - Abscess limb [Unknown]
  - Perineal abscess [Unknown]
  - Cellulitis of male external genital organ [Unknown]
  - Cellulitis [Unknown]
  - Scrotal abscess [Unknown]
  - Sepsis [Unknown]
  - Rectal abscess [Unknown]
  - Necrotising soft tissue infection [Unknown]
  - Fournier^s gangrene [Unknown]
  - Necrotising fasciitis [Unknown]
  - Peritoneal abscess [Unknown]
  - Subcutaneous abscess [Unknown]
  - Groin abscess [Unknown]

NARRATIVE: CASE EVENT DATE: 20171228
